FAERS Safety Report 18526103 (Version 1)
Quarter: 2020Q4

REPORT INFORMATION
  Report Type: Spontaneous
  Country: US (occurrence: US)
  Receive Date: 20201120
  Receipt Date: 20201120
  Transmission Date: 20210114
  Serious: Yes (Death)
  Sender: FDA-Public Use
  Company Number: US-ROCHE-2716839

PATIENT
  Age: 93 Year
  Sex: Female

DRUGS (16)
  1. OMEPRAZOLE. [Concomitant]
     Active Substance: OMEPRAZOLE
  2. GABAPENTIN. [Concomitant]
     Active Substance: GABAPENTIN
  3. ERIVEDGE [Suspect]
     Active Substance: VISMODEGIB
     Indication: BASAL CELL CARCINOMA
     Route: 048
  4. TRAMADOL. [Concomitant]
     Active Substance: TRAMADOL
  5. LOSARTAN. [Concomitant]
     Active Substance: LOSARTAN
  6. FUROSEMIDE. [Concomitant]
     Active Substance: FUROSEMIDE
  7. DOXYCYCLINE. [Concomitant]
     Active Substance: DOXYCYCLINE
  8. ACETAMINOPHEN. [Concomitant]
     Active Substance: ACETAMINOPHEN
  9. KEFLEX [Concomitant]
     Active Substance: CEPHALEXIN
  10. FOLIC ACID. [Concomitant]
     Active Substance: FOLIC ACID
  11. METHOTREXATE. [Concomitant]
     Active Substance: METHOTREXATE
  12. SENOKOT [Concomitant]
     Active Substance: SENNOSIDES
  13. PREDNISONE. [Concomitant]
     Active Substance: PREDNISONE
  14. SYNTHROID [Concomitant]
     Active Substance: LEVOTHYROXINE SODIUM
  15. DOCUSATE [Concomitant]
     Active Substance: DOCUSATE
  16. ACETIC ACID. [Concomitant]
     Active Substance: ACETIC ACID

REACTIONS (1)
  - Death [Fatal]

NARRATIVE: CASE EVENT DATE: 20201024
